FAERS Safety Report 20013227 (Version 2)
Quarter: 2021Q4

REPORT INFORMATION
  Report Type: Report from Study
  Country: US (occurrence: US)
  Receive Date: 20211029
  Receipt Date: 20211122
  Transmission Date: 20220303
  Serious: Yes (Other)
  Sender: FDA-Public Use
  Company Number: US-BAYER-2021A229798

PATIENT
  Age: 76 Year
  Sex: Male

DRUGS (11)
  1. STIVARGA [Suspect]
     Active Substance: REGORAFENIB
     Indication: Haemophagocytic lymphohistiocytosis
     Dosage: 80MG DAILY FOR 1 WEEK
     Route: 048
     Dates: start: 202109
  2. STIVARGA [Suspect]
     Active Substance: REGORAFENIB
     Indication: Haemophagocytic lymphohistiocytosis
     Dosage: 120 MG DAILY FOR 1 WEEK
     Route: 048
     Dates: start: 202110
  3. STIVARGA [Suspect]
     Active Substance: REGORAFENIB
     Indication: Haemophagocytic lymphohistiocytosis
     Dosage: 160 MG DAILY FOR 1 WEEK
     Route: 048
     Dates: start: 20211005
  4. GABAPENTIN [Concomitant]
     Active Substance: GABAPENTIN
     Dosage: UNK
  5. CLONAZEPAM [Concomitant]
     Active Substance: CLONAZEPAM
     Dosage: UNK
  6. FLUOXETINE HYDROCHLORIDE [Concomitant]
     Active Substance: FLUOXETINE HYDROCHLORIDE
     Dosage: UNK
  7. BUPROPION HYDROCHLORIDE [Concomitant]
     Active Substance: BUPROPION HYDROCHLORIDE
     Dosage: UNK
  8. OMEPRAZOLE [Concomitant]
     Active Substance: OMEPRAZOLE
     Dosage: UNK
  9. IRBESARTAN [Concomitant]
     Active Substance: IRBESARTAN
     Dosage: UNK
  10. HYDROCHLOROTHIAZIDE [Concomitant]
     Active Substance: HYDROCHLOROTHIAZIDE
     Dosage: UNK
  11. ONDANSETRON HYDROCHLORIDE [Concomitant]
     Active Substance: ONDANSETRON HYDROCHLORIDE

REACTIONS (9)
  - Neuropathy peripheral [Not Recovered/Not Resolved]
  - Abdominal pain upper [Unknown]
  - Headache [Not Recovered/Not Resolved]
  - Dizziness [Not Recovered/Not Resolved]
  - Off label use [None]
  - Product dose omission issue [None]
  - Rash [None]
  - Skin exfoliation [None]
  - Myalgia [None]

NARRATIVE: CASE EVENT DATE: 20210901
